FAERS Safety Report 24958449 (Version 1)
Quarter: 2025Q1

REPORT INFORMATION
  Report Type: Report from Study
  Country: US (occurrence: US)
  Receive Date: 20250212
  Receipt Date: 20250212
  Transmission Date: 20250409
  Serious: Yes (Other)
  Sender: ASTELLAS
  Company Number: US-ASTELLAS-2025-AER-008189

PATIENT
  Age: 91 Year
  Sex: Male

DRUGS (16)
  1. ENZALUTAMIDE [Suspect]
     Active Substance: ENZALUTAMIDE
     Indication: Prostate cancer
     Route: 048
     Dates: start: 20241123
  2. PRAVACHOL [Concomitant]
     Active Substance: PRAVASTATIN SODIUM
     Indication: Product used for unknown indication
     Dosage: 1 TABLET BY MOUTH NIGHTLY
     Route: 048
     Dates: start: 20250101
  3. FLONASE [Concomitant]
     Active Substance: FLUTICASONE PROPIONATE
     Indication: Product used for unknown indication
     Dosage: (50MCG/ACT) 1 SPRAY BY NASAL ROUTE DAILY
     Route: 045
     Dates: start: 20241219
  4. ALPHAGAN P [Concomitant]
     Active Substance: BRIMONIDINE TARTRATE
     Indication: Product used for unknown indication
     Dosage: PLACE 1 DROP INTO BOTH EYES 3 TIMES DAILY
     Route: 047
     Dates: start: 20241217
  5. XALATAN [Concomitant]
     Active Substance: LATANOPROST
     Indication: Product used for unknown indication
     Dosage: PLACE 1 DROP INTO BOTH EYES NIGHTLY
     Route: 047
     Dates: start: 20241217
  6. CARDURA [Concomitant]
     Active Substance: DOXAZOSIN MESYLATE
     Indication: Product used for unknown indication
     Dosage: 1 TABLET (8MG TOTAL) Y MOUTH 2 TIMES DAILY
     Route: 048
     Dates: start: 20241210
  7. PROSCAR [Concomitant]
     Active Substance: FINASTERIDE
     Indication: Product used for unknown indication
     Dosage: 1 TABLET (5MG TOTAL) BY MOUTH DAILY
     Route: 048
     Dates: start: 20241210
  8. SYNTHROID [Concomitant]
     Active Substance: LEVOTHYROXINE SODIUM
     Indication: Product used for unknown indication
     Dosage: 1 TABLET BY MOUTH DAILY IN THE MORNING 6 DAYS PER WEEK
     Route: 048
     Dates: start: 20241210
  9. ELIQUIS [Concomitant]
     Active Substance: APIXABAN
     Indication: Product used for unknown indication
     Dosage: 1 TABLET (5MG TOTAL) BY MOUTH 2 TIMES DAILY
     Route: 048
     Dates: start: 20241121
  10. COREG [Concomitant]
     Active Substance: CARVEDILOL
     Indication: Product used for unknown indication
     Dosage: 1 TABLET (3.125 MG TOTAL) BY MOUTH 2 TIMES DAILY
     Route: 048
     Dates: start: 20241002
  11. K DUR [Concomitant]
     Indication: Product used for unknown indication
     Dosage: 2 TABLETS (40 MEQ TOTAL) BY MOUTH DAILY
     Route: 048
     Dates: start: 20241002
  12. BUMEX [Concomitant]
     Active Substance: BUMETANIDE
     Indication: Product used for unknown indication
     Dosage: 1 TABLET (1M TOTAL) BY MOUTH DAILY
     Route: 048
     Dates: start: 20240910
  13. JARDIANCE [Concomitant]
     Active Substance: EMPAGLIFLOZIN
     Indication: Product used for unknown indication
     Dosage: 1 TABLET (10 MG TOTAL) BY MOUTH DAILY
     Route: 048
     Dates: start: 20240910
  14. IMDUR [Concomitant]
     Active Substance: ISOSORBIDE MONONITRATE
     Indication: Product used for unknown indication
     Dosage: 30MG 24 HOUR TABLET, 1 TABLET (30MG TOTAL) BY MOUTH DAILY
     Route: 048
     Dates: start: 20240823
  15. COZAAR [Concomitant]
     Active Substance: LOSARTAN POTASSIUM
     Indication: Product used for unknown indication
     Dosage: 1 TABLET (100MG TOTAL) BY MOUTH DAILY
     Route: 048
     Dates: start: 20240823
  16. APRESOLINE HYDROCHLORIDE [Concomitant]
     Active Substance: HYDRALAZINE HYDROCHLORIDE
     Indication: Product used for unknown indication
     Dosage: 1 TABLET (25MG TOTAL) BY MOUTH EVERY 8 HOURS.
     Route: 048
     Dates: start: 20240822

REACTIONS (2)
  - Hallucination [Not Recovered/Not Resolved]
  - Confusional state [Unknown]

NARRATIVE: CASE EVENT DATE: 20241223
